FAERS Safety Report 6882046-7 (Version None)
Quarter: 2010Q2

REPORT INFORMATION
  Report Type: 
  Country: None (occurrence: None)
  Receive Date: 20100630
  Receipt Date: 20090522
  Transmission Date: 20101027
  Serious: No
  Sender: FDA-Public Use
  Company Number: 2009-01096

PATIENT
  Sex: Female
  Weight: 63.9572 kg

DRUGS (7)
  1. ZICAM COLD REMEDY NASAL GEL [Suspect]
     Dosage: QID X YEARS; PAST 5 YEARS
  2. TORSEMIA [Concomitant]
  3. PROPANOLOL ER [Concomitant]
  4. K-TAB [Concomitant]
  5. PREMARIN [Concomitant]
  6. CARDURA [Concomitant]
  7. ALLOPURINOL [Concomitant]

REACTIONS (1)
  - ANOSMIA [None]
